FAERS Safety Report 5800334-X (Version None)
Quarter: 2008Q3

REPORT INFORMATION
  Report Type: 
  Country: None (occurrence: None)
  Receive Date: 20080703
  Receipt Date: 20080409
  Transmission Date: 20090109
  Serious: No
  Sender: FDA-Public Use
  Company Number: A0721908A

PATIENT
  Age: 53 Year
  Sex: Female

DRUGS (5)
  1. ADVAIR DISKUS 100/50 [Suspect]
     Indication: CHRONIC OBSTRUCTIVE PULMONARY DISEASE
     Dosage: 1PUFF TWICE PER DAY
     Route: 055
     Dates: start: 20060101
  2. TARKA [Concomitant]
  3. ULTRACET [Concomitant]
  4. MIRALAX [Concomitant]
  5. ZEGERID [Concomitant]

REACTIONS (3)
  - ABDOMINAL DISCOMFORT [None]
  - MUSCLE SPASMS [None]
  - WEIGHT INCREASED [None]
